FAERS Safety Report 9332887 (Version 2)
Quarter: 2013Q2

REPORT INFORMATION
  Report Type: Report from Study
  Country: ES (occurrence: ES)
  Receive Date: 20130606
  Receipt Date: 20130618
  Transmission Date: 20140414
  Serious: Yes (Other)
  Sender: FDA-Public Use
  Company Number: ES-ROCHE-1231180

PATIENT
  Age: 52 Year
  Sex: Female
  Weight: 48 kg

DRUGS (9)
  1. PERTUZUMAB [Suspect]
     Indication: NEOPLASM MALIGNANT
     Route: 065
     Dates: start: 20130111
  2. PERTUZUMAB [Suspect]
     Route: 065
     Dates: start: 20130204
  3. PERTUZUMAB [Suspect]
     Route: 065
     Dates: start: 20130225
  4. PERTUZUMAB [Suspect]
     Route: 065
     Dates: start: 20130313
  5. VINORELBINE [Concomitant]
     Route: 065
     Dates: start: 20130419, end: 20130503
  6. TRASTUZUMAB [Concomitant]
     Route: 042
     Dates: start: 20121130, end: 20130503
  7. TRASTUZUMAB [Concomitant]
     Route: 065
     Dates: start: 200910, end: 201110
  8. TRASTUZUMAB [Concomitant]
     Route: 065
     Dates: start: 201206, end: 20121122
  9. TAMOXIFEN [Concomitant]
     Route: 065
     Dates: start: 200805

REACTIONS (1)
  - Disease progression [Unknown]
